FAERS Safety Report 14496356 (Version 1)
Quarter: 2018Q1

REPORT INFORMATION
  Report Type: Spontaneous
  Country: LT (occurrence: LT)
  Receive Date: 20180207
  Receipt Date: 20180207
  Transmission Date: 20180509
  Serious: Yes (Other)
  Sender: FDA-Public Use
  Company Number: LT-ALVOGEN-2018-ALVOGEN-095043

PATIENT
  Sex: Female

DRUGS (10)
  1. FENTANYL. [Suspect]
     Active Substance: FENTANYL
     Indication: MATERNAL EXPOSURE TIMING UNSPECIFIED
     Route: 064
  2. DICLOFENAC [Suspect]
     Active Substance: DICLOFENAC
     Indication: MATERNAL EXPOSURE TIMING UNSPECIFIED
     Route: 064
     Dates: start: 20070814
  3. METRONIDAZOLE. [Suspect]
     Active Substance: METRONIDAZOLE
     Indication: MATERNAL EXPOSURE TIMING UNSPECIFIED
     Route: 064
  4. HEPARIN [Suspect]
     Active Substance: HEPARIN SODIUM
     Indication: MATERNAL EXPOSURE TIMING UNSPECIFIED
  5. MAGNESIUM [Suspect]
     Active Substance: MAGNESIUM
     Indication: MATERNAL EXPOSURE TIMING UNSPECIFIED
     Route: 064
  6. NITROFURANTOIN. [Suspect]
     Active Substance: NITROFURANTOIN
     Indication: MATERNAL EXPOSURE TIMING UNSPECIFIED
     Route: 064
  7. MEROPENEM. [Suspect]
     Active Substance: MEROPENEM
     Indication: MATERNAL EXPOSURE TIMING UNSPECIFIED
     Route: 064
  8. CEFAZOLIN [Suspect]
     Active Substance: CEFAZOLIN
     Indication: MATERNAL EXPOSURE TIMING UNSPECIFIED
     Route: 064
  9. GENTAMICIN. [Suspect]
     Active Substance: GENTAMICIN
     Indication: MATERNAL EXPOSURE TIMING UNSPECIFIED
     Route: 064
  10. DEXAMETHASONE. [Suspect]
     Active Substance: DEXAMETHASONE
     Indication: MATERNAL EXPOSURE TIMING UNSPECIFIED
     Route: 064

REACTIONS (1)
  - Premature baby [Unknown]
